FAERS Safety Report 11608278 (Version 2)
Quarter: 2015Q4

REPORT INFORMATION
  Report Type: Report from Study
  Country: GB (occurrence: GB)
  Receive Date: 20151007
  Receipt Date: 20151026
  Transmission Date: 20160304
  Serious: Yes (Other)
  Sender: FDA-Public Use
  Company Number: GB-JNJFOC-20150900772

PATIENT
  Age: 41 Year
  Sex: Male
  Weight: 73 kg

DRUGS (9)
  1. STELARA [Suspect]
     Active Substance: USTEKINUMAB
     Indication: PSORIASIS
     Route: 058
     Dates: start: 20150724
  2. OMEPRAZOLE. [Concomitant]
     Active Substance: OMEPRAZOLE
     Indication: DYSPEPSIA
     Dosage: ONE DAILY WHEN TAKING ANTI-INFLAMMATORY DRUG.
     Route: 065
     Dates: start: 20120430
  3. DOVOBET [Concomitant]
     Active Substance: BETAMETHASONE\CALCIPOTRIENE
     Indication: GUTTATE PSORIASIS
     Dosage: 60 GRAM- APPLY ONCE DAILY
     Route: 065
     Dates: start: 20120430
  4. STELARA [Suspect]
     Active Substance: USTEKINUMAB
     Indication: PSORIASIS
     Route: 058
     Dates: start: 201508
  5. HYDROMOL [Concomitant]
     Indication: GUTTATE PSORIASIS
     Dosage: 500 GRAMS- USE AS SOAP SUBSTITURE AND APPLY FREQUENTLY TO DRY SKIN
     Route: 065
     Dates: start: 20120430
  6. COLECALCIFEROL [Concomitant]
     Active Substance: CHOLECALCIFEROL
     Indication: HYPOCALCAEMIA
     Dosage: 60 CAPSULES- ONE DAILY
     Route: 065
     Dates: start: 20140321
  7. HYDROMOL [Concomitant]
     Indication: CUTANEOUS SYMPTOM
     Dosage: 100 GRAMS- USE AS DIRECTED
     Route: 065
     Dates: start: 20150622
  8. DOVOBET [Concomitant]
     Active Substance: BETAMETHASONE\CALCIPOTRIENE
     Indication: GUTTATE PSORIASIS
     Dosage: 120 GRAM- APPLY ONCE DAILY
     Route: 065
     Dates: start: 20130813
  9. SYMBICORT [Concomitant]
     Active Substance: BUDESONIDE\FORMOTEROL FUMARATE DIHYDRATE
     Indication: ASTHMA
     Dosage: ONE TO TWO PUFFS TWICE A DAY.
     Route: 065
     Dates: start: 20150225

REACTIONS (4)
  - Eye swelling [Recovering/Resolving]
  - Chills [Recovering/Resolving]
  - Oropharyngeal pain [Recovering/Resolving]
  - Cerebrovascular accident [Unknown]

NARRATIVE: CASE EVENT DATE: 2015
